FAERS Safety Report 7981546-6 (Version None)
Quarter: 2011Q4

REPORT INFORMATION
  Report Type: 
  Country: None (occurrence: None)
  Receive Date: 20111215
  Receipt Date: 20111213
  Transmission Date: 20120403
  Serious: Yes (Hospitalization, Other)
  Sender: FDA-Public Use
  Company Number: US-PFIZER INC-2011297016

PATIENT
  Sex: Female
  Weight: 75 kg

DRUGS (7)
  1. DILANTIN [Interacting]
     Indication: CONVULSION
     Dosage: 400MG DAILY
     Dates: start: 19760101
  2. ACTIVATED CHARCOAL [Interacting]
     Indication: DYSPEPSIA
  3. FUROSEMIDE [Concomitant]
     Indication: DIURETIC THERAPY
     Dosage: 80 MG, UNK
  4. BENICAR [Suspect]
     Indication: BLOOD PRESSURE ABNORMAL
     Dosage: UNK
     Route: 048
  5. NORCO [Concomitant]
     Indication: PAIN
     Dosage: UNK
     Route: 048
  6. ACTIVATED CHARCOAL [Interacting]
     Indication: GASTROINTESTINAL PAIN
     Dosage: UNK
     Dates: start: 20000101, end: 20000101
  7. PROTONIX [Concomitant]
     Dosage: 30 MG, UNK

REACTIONS (4)
  - ANTICONVULSANT DRUG LEVEL DECREASED [None]
  - DRUG INTERACTION [None]
  - CONVULSION [None]
  - SERUM SEROTONIN DECREASED [None]
